FAERS Safety Report 23693244 (Version 1)
Quarter: 2024Q2

REPORT INFORMATION
  Report Type: Spontaneous
  Country: FR (occurrence: FR)
  Receive Date: 20240401
  Receipt Date: 20240401
  Transmission Date: 20240716
  Serious: Yes (Hospitalization, Other)
  Sender: FDA-Public Use
  Company Number: None

PATIENT
  Age: 67 Year
  Sex: Male
  Weight: 77 kg

DRUGS (14)
  1. IFOSFAMIDE [Suspect]
     Active Substance: IFOSFAMIDE
     Indication: Liposarcoma
     Dosage: 5300 MG, ONCE A DAY, LYOPHILIZATE FOR
     Route: 042
     Dates: start: 20231204, end: 20231206
  2. MESNA [Suspect]
     Active Substance: MESNA
     Dosage: 6000 MG, ONCE A DAY, CYCLIC
     Route: 042
     Dates: start: 20231204, end: 20231206
  3. OLANZAPINE [Concomitant]
     Active Substance: OLANZAPINE
     Dosage: 5 MG
     Route: 065
     Dates: start: 20231204, end: 20231206
  4. ALIZAPRIDE [Concomitant]
     Active Substance: ALIZAPRIDE
     Dosage: 100 MG
     Route: 065
     Dates: start: 20231204, end: 20231206
  5. METHYLPREDNISOLONE ACETATE [Concomitant]
     Active Substance: METHYLPREDNISOLONE ACETATE
     Dosage: 60 MG
     Route: 065
     Dates: start: 20231204, end: 20231206
  6. CHLORPROMAZINE [Concomitant]
     Active Substance: CHLORPROMAZINE
     Dosage: 25 MG
     Route: 065
     Dates: start: 20231204, end: 20231206
  7. KARDEGIC [Concomitant]
     Active Substance: ASPIRIN DL-LYSINE
     Dosage: 1 {DF}, ONCE A DAY, IN SACHET-DOSE
     Route: 048
  8. ADRIAMYCIN [Concomitant]
     Active Substance: DOXORUBICIN HYDROCHLORIDE
     Dosage: 40 MG, ONCE A DAY, CYCLIC, LYOPHILIZATE AND SOLUTION FOR PARENTERAL USE
     Route: 042
     Dates: start: 20231204, end: 20231206
  9. VITAMIN B1 [Concomitant]
     Active Substance: THIAMINE HYDROCHLORIDE
     Dosage: 500 MG, ONCE A DAY
     Route: 048
     Dates: start: 20231204, end: 20231206
  10. BACTRIM [Concomitant]
     Active Substance: SULFAMETHOXAZOLE\TRIMETHOPRIM
     Dosage: 1 {DF}, TIMES A WEEK, (START DATE: NOV-2023)
     Route: 065
  11. ONDANSETRON [Concomitant]
     Active Substance: ONDANSETRON
     Dosage: 80 MG
     Route: 065
     Dates: start: 20231204, end: 20231206
  12. METOCLOPRAMIDE [Concomitant]
     Active Substance: METOCLOPRAMIDE
     Dosage: 10 MG
     Route: 065
     Dates: start: 20231204, end: 20231206
  13. FUROSEMIDE [Concomitant]
     Active Substance: FUROSEMIDE
     Dosage: 20 MG
     Route: 065
     Dates: start: 20231204, end: 20231206
  14. VITAMIN B6 [Concomitant]
     Active Substance: PYRIDOXINE HYDROCHLORIDE
     Dosage: 500 MG
     Route: 048
     Dates: start: 20231204, end: 20231206

REACTIONS (1)
  - Encephalopathy [Recovered/Resolved]

NARRATIVE: CASE EVENT DATE: 20231204
